FAERS Safety Report 21321906 (Version 1)
Quarter: 2022Q3

REPORT INFORMATION
  Report Type: Spontaneous
  Country: US (occurrence: US)
  Receive Date: 20220912
  Receipt Date: 20220912
  Transmission Date: 20221026
  Serious: No
  Sender: FDA-Public Use
  Company Number: US-ALLERGAN-2201572US

PATIENT
  Sex: Male

DRUGS (2)
  1. ANDRODERM [Suspect]
     Active Substance: TESTOSTERONE
     Indication: Blood testosterone decreased
     Dosage: WAS 5MG BUT NOW USING 4MG
  2. LOSARTAN [Concomitant]
     Active Substance: LOSARTAN
     Indication: Hypertension
     Dosage: 100 MG

REACTIONS (5)
  - Inappropriate schedule of product administration [Unknown]
  - Product administered at inappropriate site [Unknown]
  - Administration site pain [Not Recovered/Not Resolved]
  - Application site vesicles [Not Recovered/Not Resolved]
  - Application site erythema [Unknown]
